FAERS Safety Report 4301213-X (Version None)
Quarter: 2004Q1

REPORT INFORMATION
  Report Type: 
  Country: None (occurrence: None)
  Receive Date: 20040218
  Receipt Date: 20031122
  Transmission Date: 20041129
  Serious: No
  Sender: FDA-Public Use
  Company Number: 2003-11-1793

PATIENT
  Age: 53 Year
  Sex: Male
  Weight: 101.1521 kg

DRUGS (3)
  1. PEG-INTRON [Suspect]
     Indication: HEPATITIS C
     Dosage: QW
     Route: 058
     Dates: start: 20030901
  2. REBETOL [Suspect]
     Indication: HEPATITIS C
     Route: 048
     Dates: start: 20030901
  3. MORPHINE [Concomitant]

REACTIONS (3)
  - NAUSEA [None]
  - TINNITUS [None]
  - VOMITING [None]
